FAERS Safety Report 8900299 (Version 1)
Quarter: 2012Q4

REPORT INFORMATION
  Report Type: Report from Study
  Country: AE (occurrence: AE)
  Receive Date: 20121109
  Receipt Date: 20121109
  Transmission Date: 20130627
  Serious: Yes (Death)
  Sender: FDA-Public Use
  Company Number: AE-GENZYME-POMP-1002563

PATIENT
  Sex: Female

DRUGS (1)
  1. MYOZYME [Suspect]
     Dosage: UNK
     Route: 042

REACTIONS (1)
  - Death [Fatal]
